FAERS Safety Report 24746583 (Version 2)
Quarter: 2025Q3

REPORT INFORMATION
  Report Type: Report from Study
  Country: US (occurrence: US)
  Receive Date: 20241218
  Receipt Date: 20250803
  Transmission Date: 20251020
  Serious: Yes (Other)
  Sender: ALEXION PHARMACEUTICALS
  Company Number: US-AstraZeneca-CH-00764251A

PATIENT
  Sex: Female

DRUGS (1)
  1. OLAPARIB [Suspect]
     Active Substance: OLAPARIB
     Indication: Malignant peritoneal neoplasm
     Dosage: 250 MILLIGRAM, BID
     Dates: start: 202405

REACTIONS (10)
  - Product dose omission issue [Unknown]
  - Vomiting [Unknown]
  - Haemoptysis [Unknown]
  - Hypersensitivity [Unknown]
  - Increased upper airway secretion [Unknown]
  - Haemoglobin decreased [Unknown]
  - Nausea [Unknown]
  - Illness [Unknown]
  - Haematemesis [Unknown]
  - Otorrhoea [Unknown]
